FAERS Safety Report 5291426-5 (Version None)
Quarter: 2007Q2

REPORT INFORMATION
  Report Type: 
  Country: None (occurrence: None)
  Receive Date: 20070402
  Receipt Date: 20070326
  Transmission Date: 20071010
  Serious: Yes (Hospitalization, Other)
  Sender: FDA-Public Use
  Company Number: TAP2007Q00225

PATIENT
  Age: 79 Year
  Sex: Male

DRUGS (16)
  1. LUPRON DEPOT-4 [Suspect]
     Indication: PROSTATE CANCER
     Dosage: 30 MG, 1 IN 4 M, INTRAMUSCULAR
     Route: 030
     Dates: start: 20060426
  2. VITAMIN B12 [Concomitant]
  3. NORVASC [Concomitant]
  4. HYDROMORPHONE HCL [Concomitant]
  5. GABAPENTIN [Concomitant]
  6. ASAPHEN (ACETYLSALICYLIC ACID) [Concomitant]
  7. METOPROLOL TARTRATE [Concomitant]
  8. PAMIDRONATE (PAMIDRONATE SODIUM) [Concomitant]
  9. COMBIVENT (BREVA) [Concomitant]
  10. ARANESP [Concomitant]
  11. FLOVENT [Concomitant]
  12. DOCUSATE SODIUM (DOCUSATE SODIUM) [Concomitant]
  13. SENNOSIDES (SENNOSIDE A+B) [Concomitant]
  14. LACTULOSE [Concomitant]
  15. DILAUDID [Concomitant]
  16. TYLENOL [Concomitant]

REACTIONS (12)
  - ASTHENIA [None]
  - DRUG INEFFECTIVE [None]
  - FATIGUE [None]
  - HAEMATOLOGICAL MALIGNANCY [None]
  - IMMUNE SYSTEM DISORDER [None]
  - INSOMNIA [None]
  - NERVE COMPRESSION [None]
  - PAIN IN EXTREMITY [None]
  - PLATELET COUNT DECREASED [None]
  - PNEUMONIA [None]
  - RENAL CELL CARCINOMA STAGE UNSPECIFIED [None]
  - WHITE BLOOD CELL COUNT DECREASED [None]
